FAERS Safety Report 15211210 (Version 1)
Quarter: 2018Q3

REPORT INFORMATION
  Report Type: Spontaneous
  Country: US (occurrence: US)
  Receive Date: 20180630
  Receipt Date: 20180630
  Transmission Date: 20181010
  Serious: No
  Sender: FDA-Public Use
  Company Number: None

PATIENT
  Age: 6 Year
  Sex: Male
  Weight: 20.7 kg

DRUGS (3)
  1. MIRALAX [Suspect]
     Active Substance: POLYETHYLENE GLYCOL 3350
     Indication: CONSTIPATION
     Dosage: ?          QUANTITY:1 CAP FILLED TO LINE;?
     Route: 048
     Dates: start: 20180613, end: 20180630
  2. MULTIVITAMIN [Concomitant]
     Active Substance: VITAMINS
  3. PAPAYA ENZYMES [Concomitant]

REACTIONS (2)
  - Anger [None]
  - Aggression [None]

NARRATIVE: CASE EVENT DATE: 20180627
